FAERS Safety Report 21047919 (Version 1)
Quarter: 2022Q3

REPORT INFORMATION
  Report Type: Other
  Country: US (occurrence: None)
  Receive Date: 20220706
  Receipt Date: 20220706
  Transmission Date: 20221027
  Serious: Yes (Other)
  Sender: FDA-Public Use
  Company Number: US-ROCHE-3130278

PATIENT
  Age: 42 Year
  Sex: Female

DRUGS (2)
  1. OCREVUS [Suspect]
     Active Substance: OCRELIZUMAB
     Indication: Relapsing-remitting multiple sclerosis
     Dosage: YES?DATE OF TREATMENT: 14/JUN/2022
     Route: 065
     Dates: start: 20220531
  2. OCREVUS [Suspect]
     Active Substance: OCRELIZUMAB
     Indication: Multiple sclerosis

REACTIONS (5)
  - Pruritus [Recovered/Resolved]
  - Pyrexia [Recovered/Resolved]
  - Fungal infection [Recovered/Resolved]
  - COVID-19 [Not Recovered/Not Resolved]
  - Multiple sclerosis [Recovered/Resolved]

NARRATIVE: CASE EVENT DATE: 20220531
